FAERS Safety Report 20516677 (Version 1)
Quarter: 2022Q1

REPORT INFORMATION
  Report Type: Spontaneous
  Country: CN (occurrence: CN)
  Receive Date: 20220225
  Receipt Date: 20220225
  Transmission Date: 20220423
  Serious: Yes (Other)
  Sender: FDA-Public Use
  Company Number: CN-ABBVIE-22K-035-4292136-00

PATIENT
  Age: 30 Year
  Sex: Male
  Weight: 55 kg

DRUGS (4)
  1. VALPROATE SODIUM [Suspect]
     Active Substance: VALPROATE SODIUM
     Indication: Schizophrenia
     Route: 048
     Dates: start: 20190616, end: 20190617
  2. VALPROATE SODIUM [Suspect]
     Active Substance: VALPROATE SODIUM
     Route: 048
     Dates: start: 20190618, end: 20190721
  3. RISPERIDONE [Suspect]
     Active Substance: RISPERIDONE
     Indication: Psychiatric symptom
     Route: 048
     Dates: start: 20190618, end: 20190630
  4. RISPERIDONE [Suspect]
     Active Substance: RISPERIDONE
     Dosage: 2 MG AT MORNING 3 MG AT NIGHT
     Route: 048
     Dates: start: 20190701, end: 20190722

REACTIONS (1)
  - Platelet count decreased [Unknown]

NARRATIVE: CASE EVENT DATE: 20190719
